FAERS Safety Report 21918541 (Version 2)
Quarter: 2023Q1

REPORT INFORMATION
  Report Type: Report from Study
  Country: US (occurrence: US)
  Receive Date: 20230127
  Receipt Date: 20230131
  Transmission Date: 20230418
  Serious: Yes (Hospitalization)
  Sender: FDA-Public Use
  Company Number: US-002147023-NVSC2022US246355

PATIENT
  Age: 4 Year
  Sex: Male
  Weight: 17.2 kg

DRUGS (4)
  1. ZOLGENSMA [Suspect]
     Active Substance: ONASEMNOGENE ABEPARVOVEC-XIOI
     Indication: Spinal muscular atrophy
     Dosage: UNK
     Route: 037
     Dates: start: 20220324
  2. ZOLGENSMA [Suspect]
     Active Substance: ONASEMNOGENE ABEPARVOVEC-XIOI
     Dosage: UNK
     Route: 037
     Dates: start: 20220427
  3. MIRALAX [Concomitant]
     Active Substance: POLYETHYLENE GLYCOL 3350
     Indication: Constipation
     Dosage: UNK
     Route: 065
     Dates: start: 20210915
  4. ALBUTEROL [Concomitant]
     Active Substance: ALBUTEROL
     Indication: Wheezing
     Dosage: UNK
     Route: 065
     Dates: start: 20211216

REACTIONS (2)
  - Respiratory tract infection viral [Recovered/Resolved]
  - Respiratory tract infection viral [Recovered/Resolved]

NARRATIVE: CASE EVENT DATE: 20221031
